FAERS Safety Report 8335314 (Version 4)
Quarter: 2012Q4

REPORT INFORMATION
  Report Type: 
  Country: US (occurrence: US)
  Receive Date: 20120113
  Receipt Date: 20120831
  Transmission Date: 20130627
  Serious: Yes (Hospitalization)
  Sender: FDA-Public Use
  Company Number: US-BIOGENIDEC-2012BI001132

PATIENT
  Age: 54 Year
  Sex: Female

DRUGS (4)
  1. TYSABRI [Suspect]
     Indication: MULTIPLE SCLEROSIS
     Route: 042
     Dates: start: 20100810, end: 20111228
  2. AMBIEN [Concomitant]
  3. TYLENOL [Concomitant]
  4. ULTRAM [Concomitant]

REACTIONS (11)
  - Extradural haematoma [Not Recovered/Not Resolved]
  - Subarachnoid haemorrhage [Recovered/Resolved]
  - Head injury [Unknown]
  - Hypoaesthesia [Recovered/Resolved]
  - Hemiparesis [Recovered/Resolved]
  - Balance disorder [Recovered/Resolved]
  - Dizziness [Unknown]
  - Mental impairment [Unknown]
  - Dysphagia [Unknown]
  - Musculoskeletal disorder [Recovered/Resolved]
  - Aphasia [Recovered/Resolved]
